FAERS Safety Report 5571978-8 (Version None)
Quarter: 2007Q4

REPORT INFORMATION
  Report Type: 
  Country: None (occurrence: None)
  Receive Date: 20071221
  Receipt Date: 20071218
  Transmission Date: 20080405
  Serious: Yes (Hospitalization)
  Sender: FDA-Public Use
  Company Number: US-BOEHRINGER INGELHEIM PHARMACEUTICALS, INC.-2007-BP-26535BP

PATIENT
  Sex: Female

DRUGS (1)
  1. DULCOLAX STOOL SOFTENER [Suspect]
     Indication: CONSTIPATION
     Route: 048
     Dates: start: 20071217, end: 20071217

REACTIONS (1)
  - BLOOD PRESSURE DECREASED [None]
